FAERS Safety Report 6574227-7 (Version None)
Quarter: 2010Q1

REPORT INFORMATION
  Report Type: 
  Country: None (occurrence: None)
  Receive Date: 20100208
  Receipt Date: 20100125
  Transmission Date: 20100710
  Serious: Yes (Other)
  Sender: FDA-Public Use
  Company Number: US-JNJFOC-20100111005

PATIENT
  Sex: Male
  Weight: 88.45 kg

DRUGS (4)
  1. EXTRA STRENGTH TYLENOL [Suspect]
     Indication: NEPHROLITHIASIS
     Route: 048
  2. EXTRA STRENGTH TYLENOL [Suspect]
     Dosage: 1000 MG DAILY, TWO TO THREE TIMES WEEKLY, ORAL
     Route: 048
  3. EXTRA STRENGTH TYLENOL [Suspect]
     Indication: ARTHRITIS
     Route: 048
  4. EXTRA STRENGTH TYLENOL [Suspect]
     Dosage: 1000 MG DAILY, TWO TO THREE TIMES WEEKLY, ORAL
     Route: 048

REACTIONS (2)
  - NEPHROLITHIASIS [None]
  - PRODUCT QUALITY ISSUE [None]
